FAERS Safety Report 8809010 (Version 1)
Quarter: 2012Q4

REPORT INFORMATION
  Report Type: 
  Country: US (occurrence: None)
  Receive Date: 20120920
  Receipt Date: 20120920
  Transmission Date: 20130627
  Serious: Yes (Hospitalization)
  Sender: FDA-Public Use
  Company Number: None

PATIENT
  Age: 88 Year
  Sex: Male
  Weight: 78.9 kg

DRUGS (1)
  1. CISPLATIN [Suspect]

REACTIONS (13)
  - Nausea [None]
  - Vomiting [None]
  - Hypophagia [None]
  - Renal failure acute [None]
  - Increased viscosity of bronchial secretion [None]
  - Constipation [None]
  - Oral pain [None]
  - Oropharyngeal pain [None]
  - Tachycardia [None]
  - Dehydration [None]
  - Mucosal inflammation [None]
  - Pain [None]
  - Dizziness postural [None]
